FAERS Safety Report 25778875 (Version 1)
Quarter: 2025Q3

REPORT INFORMATION
  Report Type: Spontaneous
  Country: UA (occurrence: UA)
  Receive Date: 20250909
  Receipt Date: 20250909
  Transmission Date: 20251020
  Serious: Yes (Hospitalization, Other)
  Sender: BAYER HEALTHCARE PHARMACEUTICALS INC.
  Company Number: UA-BAYER-2025A115400

PATIENT
  Age: 60 Year
  Sex: Female

DRUGS (1)
  1. AVELOX [Suspect]
     Active Substance: MOXIFLOXACIN HYDROCHLORIDE
     Indication: Pneumonia
     Route: 048
     Dates: start: 2021

REACTIONS (6)
  - Pulmonary fibrosis [None]
  - Right ventricular failure [None]
  - Cystic lung disease [None]
  - Dyspnoea [None]
  - Cough [None]
  - Leukocytosis [None]

NARRATIVE: CASE EVENT DATE: 20210531
